FAERS Safety Report 5949451-4 (Version None)
Quarter: 2008Q4

REPORT INFORMATION
  Report Type: 
  Country: None (occurrence: None)
  Receive Date: 20081112
  Receipt Date: 20081103
  Transmission Date: 20090506
  Serious: Yes (Other)
  Sender: FDA-Public Use
  Company Number: PHEH2008US09881

PATIENT
  Sex: Female

DRUGS (11)
  1. FEMARA [Suspect]
     Indication: BREAST CANCER
     Dosage: 2.5 MG, QD
     Route: 048
     Dates: start: 20010101
  2. BETACAROTENE [Concomitant]
  3. VITAMIN E [Concomitant]
  4. ASCORBIC ACID [Concomitant]
  5. LOVAZA [Concomitant]
  6. CALCIUM [Concomitant]
  7. MULTIVIT [Concomitant]
  8. SELENIUM [Concomitant]
  9. VITAMIN B COMPLEX CAP [Concomitant]
  10. VITAMIN D [Suspect]
  11. COENZYME Q10 [Concomitant]

REACTIONS (3)
  - HYPOAESTHESIA [None]
  - NEUROPATHY PERIPHERAL [None]
  - SENSATION OF PRESSURE [None]
